FAERS Safety Report 6481652-1 (Version None)
Quarter: 2009Q4

REPORT INFORMATION
  Report Type: 
  Country: None (occurrence: None)
  Receive Date: 20091208
  Receipt Date: 20091130
  Transmission Date: 20100525
  Serious: Yes (Hospitalization)
  Sender: FDA-Public Use
  Company Number: US-ELI_LILLY_AND_COMPANY-US200912000294

PATIENT
  Sex: Female

DRUGS (5)
  1. FORTEO [Suspect]
     Indication: OSTEOPOROSIS
     Dosage: 20 UG, DAILY (1/D)
     Dates: start: 20090301
  2. CLONIDINE [Concomitant]
     Indication: BLOOD PRESSURE
     Dosage: 0.5 MG, DAILY (1/D)
  3. CLONAZEPAM [Concomitant]
     Dosage: 0.5 MG, 2/D
  4. TEGRETOL [Concomitant]
     Dosage: UNK, 2/D
  5. IBUPROFEN [Concomitant]
     Dosage: 600 MG, 4/D

REACTIONS (2)
  - LUNG DISORDER [None]
  - NICOTINE DEPENDENCE [None]
